FAERS Safety Report 15057900 (Version 3)
Quarter: 2018Q3

REPORT INFORMATION
  Report Type: Spontaneous
  Country: JP (occurrence: JP)
  Receive Date: 20180625
  Receipt Date: 20180903
  Transmission Date: 20181010
  Serious: Yes (Other)
  Sender: FDA-Public Use
  Company Number: JP-BRISTOL-MYERS SQUIBB COMPANY-BMS-2018-056614

PATIENT
  Age: 53 Month
  Sex: Female
  Weight: 10.4 kg

DRUGS (1)
  1. KENACORT?A [Suspect]
     Active Substance: TRIAMCINOLONE
     Indication: LARYNGEAL STENOSIS
     Dosage: 1 MG/KG, UNK
     Route: 026

REACTIONS (3)
  - Product use in unapproved indication [Unknown]
  - Thyroiditis subacute [Unknown]
  - Incorrect route of drug administration [Unknown]
